FAERS Safety Report 24687497 (Version 1)
Quarter: 2024Q4

REPORT INFORMATION
  Report Type: Spontaneous
  Country: US (occurrence: None)
  Receive Date: 20241202
  Receipt Date: 20241202
  Transmission Date: 20250115
  Serious: Yes (Life-Threatening)
  Sender: Public
  Company Number: None

PATIENT
  Age: 88 Year
  Sex: Female
  Weight: 98.8 kg

DRUGS (2)
  1. CEFTRIAXONE [Suspect]
     Active Substance: CEFTRIAXONE
     Indication: Pneumonia
     Dates: start: 20241114, end: 20241114
  2. LEVOFLOXACIN [Concomitant]
     Active Substance: LEVOFLOXACIN
     Dates: start: 20241113, end: 20241114

REACTIONS (4)
  - Infusion related reaction [None]
  - Rash [None]
  - Pruritus [None]
  - Lip oedema [None]

NARRATIVE: CASE EVENT DATE: 20241114
